FAERS Safety Report 7122161-6 (Version None)
Quarter: 2010Q4

REPORT INFORMATION
  Report Type: 
  Country: None (occurrence: None)
  Receive Date: 20101119
  Receipt Date: 20101119
  Transmission Date: 20110411
  Serious: Yes (Other)
  Sender: FDA-Public Use
  Company Number: None

PATIENT
  Age: 39 Year
  Sex: Female
  Weight: 63.5036 kg

DRUGS (2)
  1. BUPROPION SR 100MG TEVA USA [Suspect]
     Indication: DEPRESSION
     Dosage: 3 TABS QAM PO
     Route: 048
     Dates: start: 20040101, end: 20101117
  2. BUPROPION SR 100MG TEVA USA [Suspect]
     Indication: POST-TRAUMATIC STRESS DISORDER
     Dosage: 3 TABS QAM PO
     Route: 048
     Dates: start: 20040101, end: 20101117

REACTIONS (3)
  - PRODUCT QUALITY ISSUE [None]
  - PRURITUS [None]
  - SKIN REACTION [None]
